FAERS Safety Report 8276011-5 (Version None)
Quarter: 2012Q2

REPORT INFORMATION
  Report Type: 
  Country: None (occurrence: None)
  Receive Date: 20120410
  Receipt Date: 20120410
  Transmission Date: 20120825
  Serious: Yes (Hospitalization)
  Sender: FDA-Public Use
  Company Number: None

PATIENT
  Sex: Female

DRUGS (1)
  1. CELESTONE [Suspect]
     Dosage: IM
     Route: 030

REACTIONS (3)
  - MEDICATION ERROR [None]
  - INCORRECT DOSE ADMINISTERED [None]
  - PRODUCT LABEL CONFUSION [None]
